FAERS Safety Report 4568462-7 (Version None)
Quarter: 2005Q1

REPORT INFORMATION
  Report Type: 
  Country: None (occurrence: None)
  Receive Date: 20050131
  Receipt Date: 20050124
  Transmission Date: 20050727
  Serious: Yes (Life-Threatening)
  Sender: FDA-Public Use
  Company Number: 2005-124528-NL

PATIENT
  Age: 48 Year
  Sex: Female

DRUGS (4)
  1. MIRTAZAPINE [Suspect]
     Indication: DEPRESSION
     Dosage: 30 MG
     Route: 048
     Dates: start: 20041208
  2. THYROXINE SODIUM [Concomitant]
  3. VALSARTAN [Concomitant]
  4. BETAHISTINE [Concomitant]

REACTIONS (1)
  - SUICIDAL IDEATION [None]
